FAERS Safety Report 7811218-X (Version None)
Quarter: 2011Q4

REPORT INFORMATION
  Report Type: 
  Country: None (occurrence: None)
  Receive Date: 20111013
  Receipt Date: 20111010
  Transmission Date: 20120403
  Serious: Yes (Other)
  Sender: FDA-Public Use
  Company Number: US-AMGEN-USASP2011052258

PATIENT
  Sex: Female

DRUGS (2)
  1. ENBREL [Suspect]
     Indication: RHEUMATOID ARTHRITIS
     Dosage: 50 MG, QWK
     Dates: start: 20080101
  2. HUMIRA [Concomitant]
     Dosage: UNK

REACTIONS (4)
  - JOINT LOCK [None]
  - INJECTION SITE PAIN [None]
  - BACK PAIN [None]
  - IRRITABLE BOWEL SYNDROME [None]
